FAERS Safety Report 24169032 (Version 3)
Quarter: 2024Q3

REPORT INFORMATION
  Report Type: Spontaneous
  Country: US (occurrence: US)
  Receive Date: 20240802
  Receipt Date: 20240819
  Transmission Date: 20241017
  Serious: No
  Sender: PFIZER
  Company Number: US-PFIZER INC-202400227507

PATIENT
  Age: 75 Year
  Sex: Female
  Weight: 69.85 kg

DRUGS (5)
  1. IBRANCE [Suspect]
     Active Substance: PALBOCICLIB
     Indication: Breast cancer metastatic
     Dosage: 125 MG
     Route: 048
  2. IBRANCE [Suspect]
     Active Substance: PALBOCICLIB
     Dosage: 100 MG
     Route: 048
  3. IBRANCE [Suspect]
     Active Substance: PALBOCICLIB
     Dosage: 75 MG
     Route: 048
  4. ANASTROZOLE [Concomitant]
     Active Substance: ANASTROZOLE
     Indication: Breast cancer metastatic
     Dosage: 1 DF, 1X/DAY (1 TABLET A DAY)
  5. XGEVA [Concomitant]
     Active Substance: DENOSUMAB
     Indication: Bone cancer
     Dosage: 1 DF, MONTHLY (1 INJECTION A MONTH)
     Dates: start: 2022

REACTIONS (1)
  - White blood cell count decreased [Unknown]
